FAERS Safety Report 7620370-0 (Version None)
Quarter: 2011Q3

REPORT INFORMATION
  Report Type: 
  Country: None (occurrence: None)
  Receive Date: 20110718
  Receipt Date: 20110718
  Transmission Date: 20111222
  Serious: Yes (Other)
  Sender: FDA-Public Use
  Company Number: None

PATIENT
  Age: 26 Year
  Sex: Female
  Weight: 62.595 kg

DRUGS (1)
  1. LOESTRIN 24 FE [Suspect]
     Indication: CONTRACEPTION
     Dosage: 1 PILL
     Route: 048
     Dates: start: 20110301, end: 20110711

REACTIONS (8)
  - MUSCLE SPASMS [None]
  - FATIGUE [None]
  - NAUSEA [None]
  - HOT FLUSH [None]
  - WEIGHT INCREASED [None]
  - HEADACHE [None]
  - DYSPNOEA [None]
  - BREAST TENDERNESS [None]
